FAERS Safety Report 10338260 (Version 1)
Quarter: 2014Q3

REPORT INFORMATION
  Report Type: Spontaneous
  Country: US (occurrence: US)
  Receive Date: 20140724
  Receipt Date: 20140724
  Transmission Date: 20150326
  Serious: No
  Sender: FDA-Public Use
  Company Number: US-PFIZER INC-2014205388

PATIENT
  Age: 59 Year
  Sex: Female
  Weight: 72.56 kg

DRUGS (10)
  1. CELEBREX [Suspect]
     Active Substance: CELECOXIB
     Indication: ARTHRALGIA
  2. SAVELLA [Concomitant]
     Active Substance: MILNACIPRAN HYDROCHLORIDE
     Dosage: UNK
  3. CELEBREX [Suspect]
     Active Substance: CELECOXIB
     Indication: BACK PAIN
     Dosage: 200 MG, DAILY AT NIGHT
  4. CELEBREX [Suspect]
     Active Substance: CELECOXIB
     Indication: ARTHRITIS
  5. METOPROLOL [Concomitant]
     Active Substance: METOPROLOL
     Dosage: UNK
  6. NUCYNTA ER [Concomitant]
     Active Substance: TAPENTADOL HYDROCHLORIDE
     Dosage: UNK
  7. CELEBREX [Suspect]
     Active Substance: CELECOXIB
     Indication: PAIN IN EXTREMITY
  8. CELEBREX [Suspect]
     Active Substance: CELECOXIB
     Indication: PAIN IN EXTREMITY
  9. CYMBALTA [Concomitant]
     Active Substance: DULOXETINE HYDROCHLORIDE
     Dosage: UNK
  10. ALPRAZOLAM. [Concomitant]
     Active Substance: ALPRAZOLAM
     Dosage: UNK

REACTIONS (1)
  - Drug ineffective [Unknown]
